FAERS Safety Report 7494155-2 (Version None)
Quarter: 2011Q2

REPORT INFORMATION
  Report Type: 
  Country: None (occurrence: None)
  Receive Date: 20110520
  Receipt Date: 20110509
  Transmission Date: 20111010
  Serious: Yes (Death)
  Sender: FDA-Public Use
  Company Number: US-JNJFOC-20110303466

PATIENT
  Sex: Male
  Weight: 66.23 kg

DRUGS (11)
  1. STELARA [Suspect]
     Route: 058
     Dates: start: 20100923
  2. NEXIUM [Concomitant]
  3. STELARA [Suspect]
     Indication: PSORIASIS
     Route: 058
     Dates: start: 20100305
  4. VECTICAL [Concomitant]
  5. STELARA [Suspect]
     Route: 058
     Dates: start: 20100409
  6. WELLBUTRIN [Concomitant]
  7. PREDNISONE [Concomitant]
  8. STELARA [Suspect]
     Route: 058
     Dates: start: 20101210
  9. LIALDA [Concomitant]
  10. LYRICA [Concomitant]
  11. STELARA [Suspect]
     Route: 058
     Dates: start: 20100702

REACTIONS (1)
  - LUNG DISORDER [None]
